FAERS Safety Report 5300250-6 (Version None)
Quarter: 2007Q2

REPORT INFORMATION
  Report Type: 
  Country: None (occurrence: None)
  Receive Date: 20070418
  Receipt Date: 20070405
  Transmission Date: 20071010
  Serious: Yes (Hospitalization)
  Sender: FDA-Public Use
  Company Number: GB-JNJFOC-20070303961

PATIENT
  Age: 58 Year
  Sex: Female

DRUGS (3)
  1. LOPERAMIDE HCL [Suspect]
     Indication: DIARRHOEA
     Route: 065
  2. RIFAXIMIN [Concomitant]
  3. LEVOTHYROXINE SODIUM [Concomitant]
     Route: 065

REACTIONS (10)
  - AMOEBIC COLITIS [None]
  - GASTROINTESTINAL NECROSIS [None]
  - HYPOALBUMINAEMIA [None]
  - HYPONATRAEMIA [None]
  - ILEUS PARALYTIC [None]
  - LARGE INTESTINE PERFORATION [None]
  - LYMPHOPENIA [None]
  - MEGACOLON [None]
  - NEUTROPENIA [None]
  - SEPSIS [None]
